FAERS Safety Report 5921085-7 (Version None)
Quarter: 2008Q4

REPORT INFORMATION
  Report Type: 
  Country: None (occurrence: None)
  Receive Date: 20081016
  Receipt Date: 20081010
  Transmission Date: 20090506
  Serious: Yes (Life-Threatening, Hospitalization, Disabling)
  Sender: FDA-Public Use
  Company Number: UA-AVENTIS-200819572GDDC

PATIENT
  Age: 72 Year
  Sex: Female
  Weight: 75 kg

DRUGS (3)
  1. GLIMEPIRIDE [Suspect]
     Indication: TYPE 2 DIABETES MELLITUS
     Route: 048
     Dates: start: 20051121, end: 20070214
  2. GLIMEPIRIDE [Suspect]
     Route: 048
     Dates: start: 20070319, end: 20070415
  3. AMLONG-A                           /01687901/ [Concomitant]

REACTIONS (5)
  - ASTHENIA [None]
  - DERMATITIS ALLERGIC [None]
  - PANCREATITIS CHRONIC [None]
  - PRURITUS [None]
  - RASH [None]
